FAERS Safety Report 13289577 (Version 1)
Quarter: 2017Q1

REPORT INFORMATION
  Report Type: Spontaneous
  Country: US (occurrence: US)
  Receive Date: 20170302
  Receipt Date: 20170302
  Transmission Date: 20170428
  Serious: Yes (Other)
  Sender: FDA-Public Use
  Company Number: US-DEPOMED, INC.-US-2016DEP012884

PATIENT

DRUGS (2)
  1. GRALISE [Suspect]
     Active Substance: GABAPENTIN
     Indication: PRODUCT USED FOR UNKNOWN INDICATION
     Dosage: 600 MG, 1 TABLET IN AM, 5 TABLETS IN PM
  2. GRALISE [Suspect]
     Active Substance: GABAPENTIN
     Dosage: 400 MG, UNK
     Dates: start: 20161201, end: 20161201

REACTIONS (3)
  - Overdose [Unknown]
  - Drug titration error [Unknown]
  - Drug prescribing error [Unknown]
